FAERS Safety Report 8164195-9 (Version None)
Quarter: 2012Q1

REPORT INFORMATION
  Report Type: 
  Country: None (occurrence: None)
  Receive Date: 20120224
  Receipt Date: 20120216
  Transmission Date: 20120608
  Serious: Yes (Other)
  Sender: FDA-Public Use
  Company Number: US-US-EMD SERONO, INC.-7113983

PATIENT
  Sex: Female

DRUGS (1)
  1. REBIF [Suspect]
     Indication: MULTIPLE SCLEROSIS
     Route: 058
     Dates: start: 20080624, end: 20120101

REACTIONS (6)
  - FATIGUE [None]
  - HYPOAESTHESIA [None]
  - EYE PAIN [None]
  - PARAESTHESIA [None]
  - CATARACT OPERATION [None]
  - MUSCULOSKELETAL STIFFNESS [None]
